FAERS Safety Report 4449407-7 (Version None)
Quarter: 2004Q3

REPORT INFORMATION
  Report Type: 
  Country: None (occurrence: None)
  Receive Date: 20040914
  Receipt Date: 20040827
  Transmission Date: 20050211
  Serious: Yes (Hospitalization)
  Sender: FDA-Public Use
  Company Number: 177903

PATIENT
  Age: 50 Year
  Sex: Female

DRUGS (1)
  1. AVONEX [Suspect]
     Indication: MULTIPLE SCLEROSIS
     Dosage: 30 MCG QW; IM
     Route: 030
     Dates: start: 19960101

REACTIONS (4)
  - BREAST DISORDER FEMALE [None]
  - CHOLELITHIASIS [None]
  - INFECTED SEBACEOUS CYST [None]
  - PANCREATITIS [None]
